FAERS Safety Report 7190129-X (Version None)
Quarter: 2010Q4

REPORT INFORMATION
  Report Type: 
  Country: None (occurrence: None)
  Receive Date: 20101213
  Receipt Date: 20101207
  Transmission Date: 20110411
  Serious: Yes (Congenital Anomaly, Other)
  Sender: FDA-Public Use
  Company Number: 10FR001422

PATIENT
  Sex: Female

DRUGS (1)
  1. VALPROIC ACID [Suspect]
     Indication: DRUG EXPOSURE DURING PREGNANCY
     Dosage: 2000 MG, QD

REACTIONS (13)
  - AFFECT LABILITY [None]
  - AGGRESSION [None]
  - ATRIAL SEPTAL DEFECT [None]
  - EPILEPSY [None]
  - FEBRILE CONVULSION [None]
  - FOETAL ANTICONVULSANT SYNDROME [None]
  - LEG AMPUTATION [None]
  - LIMB HYPOPLASIA CONGENITAL [None]
  - MATERNAL DRUGS AFFECTING FOETUS [None]
  - MENTAL RETARDATION [None]
  - SMALL FOR DATES BABY [None]
  - SPEECH DISORDER DEVELOPMENTAL [None]
  - TALIPES [None]
